FAERS Safety Report 16353605 (Version 2)
Quarter: 2019Q2

REPORT INFORMATION
  Report Type: Report from Study
  Country: FR (occurrence: FR)
  Receive Date: 20190524
  Receipt Date: 20190529
  Transmission Date: 20190711
  Serious: Yes (Death)
  Sender: FDA-Public Use
  Company Number: FR-PFIZER INC-2019221933

PATIENT

DRUGS (2)
  1. METHYLPREDNISOLONE. [Concomitant]
     Active Substance: METHYLPREDNISOLONE
     Indication: PROPHYLAXIS
     Dosage: 32 MG, UNK
     Route: 048
  2. DOXORUBICIN HCL [Suspect]
     Active Substance: DOXORUBICIN HYDROCHLORIDE
     Indication: HEPATOCELLULAR CARCINOMA
     Dosage: UNK UNK, CYCLIC (30 MG/M2 OR 20 MG/M2)
     Route: 042

REACTIONS (1)
  - Death [Fatal]
